FAERS Safety Report 21259839 (Version 1)
Quarter: 2022Q3

REPORT INFORMATION
  Report Type: Spontaneous
  Country: US (occurrence: None)
  Receive Date: 20220825
  Receipt Date: 20220825
  Transmission Date: 20221027
  Serious: Yes (Hospitalization)
  Sender: FDA-Public Use
  Company Number: None

PATIENT
  Age: 39 Year
  Sex: Female

DRUGS (12)
  1. AMBRISENTAN [Suspect]
     Active Substance: AMBRISENTAN
     Indication: Pulmonary arterial hypertension
     Dosage: FREQUENCY : DAILY;?
     Route: 048
     Dates: start: 20220415
  2. TADALAFIL [Concomitant]
     Active Substance: TADALAFIL
  3. POTASSIUM CHLORIDE [Concomitant]
     Active Substance: POTASSIUM CHLORIDE
  4. FUROSEMIDE [Concomitant]
     Active Substance: FUROSEMIDE
  5. ASCORBIC ACID [Concomitant]
     Active Substance: ASCORBIC ACID
  6. verrous sulfate [Concomitant]
  7. VITAMINS [Concomitant]
     Active Substance: VITAMINS
  8. NORA BE [Concomitant]
     Active Substance: NORETHINDRONE
  9. METOPROLOL [Concomitant]
     Active Substance: METOPROLOL
  10. ATORVASTATIN [Concomitant]
     Active Substance: ATORVASTATIN
  11. XARELTO [Concomitant]
     Active Substance: RIVAROXABAN
  12. ALBUTEROL SULFATE [Concomitant]
     Active Substance: ALBUTEROL SULFATE

REACTIONS (5)
  - Anaemia [None]
  - Dyspnoea [None]
  - Oedema peripheral [None]
  - Weight increased [None]
  - Polymenorrhoea [None]

NARRATIVE: CASE EVENT DATE: 20220814
